FAERS Safety Report 8188302-7 (Version None)
Quarter: 2012Q1

REPORT INFORMATION
  Report Type: 
  Country: None (occurrence: None)
  Receive Date: 20120306
  Receipt Date: 20120223
  Transmission Date: 20120608
  Serious: Yes (Hospitalization, Other)
  Sender: FDA-Public Use
  Company Number: US-ELI_LILLY_AND_COMPANY-US201009007027

PATIENT
  Age: 85 Year
  Sex: Female
  Weight: 65.3 kg

DRUGS (12)
  1. FORTEO [Suspect]
     Indication: OSTEOPOROSIS
     Dosage: 20 UG, QD
     Route: 058
     Dates: start: 20100728
  2. LISINOPRIL [Concomitant]
  3. CELEBREX [Concomitant]
  4. ZOCOR [Concomitant]
  5. CLONIDINE [Concomitant]
  6. CALCIUM CITRATE W/COLECALCIFEROL [Concomitant]
  7. FORTEO [Suspect]
     Dosage: 20 UG, QD
     Route: 058
     Dates: end: 20110606
  8. FORTEO [Suspect]
     Dosage: 20 UG, QD
     Route: 058
  9. VESICARE [Concomitant]
  10. HIDROCLOROTIAZIDA [Concomitant]
  11. LEVOTHYROXINE SODIUM [Concomitant]
  12. ATENOLOL [Concomitant]

REACTIONS (2)
  - CHILLS [None]
  - OSTEOARTHRITIS [None]
